FAERS Safety Report 21661696 (Version 7)
Quarter: 2025Q2

REPORT INFORMATION
  Report Type: Spontaneous
  Country: CA (occurrence: CA)
  Receive Date: 20221130
  Receipt Date: 20250423
  Transmission Date: 20250716
  Serious: Yes (Hospitalization, Other)
  Sender: ASTELLAS
  Company Number: CA-ASTELLAS-2022US042176

PATIENT
  Age: 9 Year
  Sex: Male

DRUGS (77)
  1. TACROLIMUS [Interacting]
     Active Substance: TACROLIMUS
     Indication: Immunosuppressant drug therapy
     Route: 065
  2. TACROLIMUS [Interacting]
     Active Substance: TACROLIMUS
     Indication: Donor specific antibody present
     Route: 065
  3. TACROLIMUS [Interacting]
     Active Substance: TACROLIMUS
     Indication: Immunosuppression
     Route: 065
  4. TACROLIMUS [Interacting]
     Active Substance: TACROLIMUS
     Indication: Prophylaxis against transplant rejection
     Route: 065
  5. TACROLIMUS [Interacting]
     Active Substance: TACROLIMUS
     Indication: Prophylaxis against transplant rejection
     Route: 065
  6. PREDNISONE [Suspect]
     Active Substance: PREDNISONE
     Indication: Donor specific antibody present
     Route: 065
  7. PREDNISONE [Suspect]
     Active Substance: PREDNISONE
     Indication: Prophylaxis against transplant rejection
     Route: 065
  8. PREDNISONE [Suspect]
     Active Substance: PREDNISONE
     Indication: Prophylaxis against transplant rejection
  9. CLOFAZIMINE [Suspect]
     Active Substance: CLOFAZIMINE
     Indication: Mycobacterium fortuitum infection
     Dosage: 50 MG, ONCE DAILY
     Route: 048
  10. CLOFAZIMINE [Suspect]
     Active Substance: CLOFAZIMINE
     Indication: Peritonitis bacterial
  11. CLOFAZIMINE [Suspect]
     Active Substance: CLOFAZIMINE
     Indication: Device related infection
  12. ARIPIPRAZOLE [Suspect]
     Active Substance: ARIPIPRAZOLE
     Indication: Anxiety
     Route: 065
  13. ARIPIPRAZOLE [Suspect]
     Active Substance: ARIPIPRAZOLE
     Indication: Abnormal behaviour
     Route: 065
  14. ARIPIPRAZOLE [Suspect]
     Active Substance: ARIPIPRAZOLE
     Indication: Behaviour disorder
  15. SERTRALINE HYDROCHLORIDE [Suspect]
     Active Substance: SERTRALINE HYDROCHLORIDE
     Indication: Behaviour disorder
     Route: 065
  16. SERTRALINE HYDROCHLORIDE [Suspect]
     Active Substance: SERTRALINE HYDROCHLORIDE
     Indication: Anxiety
     Route: 065
  17. SERTRALINE HYDROCHLORIDE [Suspect]
     Active Substance: SERTRALINE HYDROCHLORIDE
     Indication: Abnormal behaviour
  18. MOXIFLOXACIN [Suspect]
     Active Substance: MOXIFLOXACIN
     Indication: Evidence based treatment
     Route: 048
  19. MOXIFLOXACIN [Suspect]
     Active Substance: MOXIFLOXACIN
     Indication: Anti-infective therapy
  20. METHYLPHENIDATE [Interacting]
     Active Substance: METHYLPHENIDATE
     Indication: Anxiety
     Route: 042
  21. METHYLPHENIDATE [Interacting]
     Active Substance: METHYLPHENIDATE
     Indication: Abnormal behaviour
     Route: 042
  22. METHYLPHENIDATE [Interacting]
     Active Substance: METHYLPHENIDATE
     Indication: Behaviour disorder
  23. ARIPIPRAZOLE [Interacting]
     Active Substance: ARIPIPRAZOLE
     Indication: Anxiety
     Route: 065
  24. ARIPIPRAZOLE [Interacting]
     Active Substance: ARIPIPRAZOLE
     Indication: Behaviour disorder
  25. LINEZOLID [Interacting]
     Active Substance: LINEZOLID
     Indication: Anti-infective therapy
     Route: 048
  26. LINEZOLID [Interacting]
     Active Substance: LINEZOLID
     Indication: Mycobacterium fortuitum infection
     Route: 048
  27. LINEZOLID [Interacting]
     Active Substance: LINEZOLID
     Indication: Device related infection
     Route: 048
  28. LINEZOLID [Interacting]
     Active Substance: LINEZOLID
     Indication: Peritonitis bacterial
     Route: 048
  29. LINEZOLID [Interacting]
     Active Substance: LINEZOLID
     Indication: Device related infection
  30. SERTRALINE [Interacting]
     Active Substance: SERTRALINE HYDROCHLORIDE
     Indication: Anxiety
     Route: 065
  31. SERTRALINE [Interacting]
     Active Substance: SERTRALINE HYDROCHLORIDE
     Indication: Abnormal behaviour
  32. SERTRALINE [Interacting]
     Active Substance: SERTRALINE HYDROCHLORIDE
     Indication: Behaviour disorder
  33. MOXIFLOXACIN [Interacting]
     Active Substance: MOXIFLOXACIN
     Indication: Anti-infective therapy
     Route: 048
  34. MOXIFLOXACIN [Interacting]
     Active Substance: MOXIFLOXACIN
     Indication: Evidence based treatment
  35. MOXIFLOXACIN [Interacting]
     Active Substance: MOXIFLOXACIN
     Indication: Evidence based treatment
  36. AMIKACIN [Concomitant]
     Active Substance: AMIKACIN
     Indication: Peritonitis
     Route: 042
  37. AMIKACIN [Concomitant]
     Active Substance: AMIKACIN
     Indication: Anti-infective therapy
     Route: 030
  38. AMIKACIN [Concomitant]
     Active Substance: AMIKACIN
     Indication: Evidence based treatment
  39. AMIKACIN [Concomitant]
     Active Substance: AMIKACIN
     Indication: Evidence based treatment
  40. CEFAZOLIN SODIUM [Concomitant]
     Active Substance: CEFAZOLIN SODIUM
     Indication: Peritonitis
     Route: 033
  41. CEFAZOLIN SODIUM [Concomitant]
     Active Substance: CEFAZOLIN SODIUM
     Indication: Evidence based treatment
  42. CEFTAZIDIME [Concomitant]
     Active Substance: CEFTAZIDIME
     Indication: Peritonitis
     Route: 065
  43. CEFTAZIDIME [Concomitant]
     Active Substance: CEFTAZIDIME
     Indication: Anti-infective therapy
     Route: 033
  44. CEFTAZIDIME [Concomitant]
     Active Substance: CEFTAZIDIME
     Indication: Evidence based treatment
     Route: 033
  45. CEFTAZIDIME [Concomitant]
     Active Substance: CEFTAZIDIME
     Indication: Evidence based treatment
  46. IMIPENEM [Concomitant]
     Active Substance: IMIPENEM
     Indication: Peritonitis
     Route: 042
  47. IMIPENEM [Concomitant]
     Active Substance: IMIPENEM
     Indication: Anti-infective therapy
  48. IMIPENEM [Concomitant]
     Active Substance: IMIPENEM
     Indication: Evidence based treatment
  49. IMIPENEM [Concomitant]
     Active Substance: IMIPENEM
     Indication: Evidence based treatment
  50. SULFAMETHOXAZOLE\TRIMETHOPRIM [Concomitant]
     Active Substance: SULFAMETHOXAZOLE\TRIMETHOPRIM
     Indication: Peritonitis
     Route: 048
  51. SULFAMETHOXAZOLE\TRIMETHOPRIM [Concomitant]
     Active Substance: SULFAMETHOXAZOLE\TRIMETHOPRIM
     Indication: Evidence based treatment
     Route: 048
  52. SULFAMETHOXAZOLE\TRIMETHOPRIM [Concomitant]
     Active Substance: SULFAMETHOXAZOLE\TRIMETHOPRIM
     Indication: Prophylaxis against transplant rejection
  53. SULFAMETHOXAZOLE\TRIMETHOPRIM [Concomitant]
     Active Substance: SULFAMETHOXAZOLE\TRIMETHOPRIM
     Indication: Evidence based treatment
  54. VANCOMYCIN [Concomitant]
     Active Substance: VANCOMYCIN
     Indication: Bacterial infection
     Route: 033
  55. VANCOMYCIN [Concomitant]
     Active Substance: VANCOMYCIN
     Indication: Evidence based treatment
  56. VANCOMYCIN [Concomitant]
     Active Substance: VANCOMYCIN
     Indication: Evidence based treatment
  57. AMIKACIN SULFATE [Concomitant]
     Active Substance: AMIKACIN SULFATE
     Indication: Evidence based treatment
     Route: 030
  58. AMIKACIN SULFATE [Concomitant]
     Active Substance: AMIKACIN SULFATE
     Route: 042
  59. CIPROFLOXACIN LACTATE [Concomitant]
     Active Substance: CIPROFLOXACIN LACTATE
     Indication: Mycobacterium fortuitum infection
     Route: 048
  60. CIPROFLOXACIN LACTATE [Concomitant]
     Active Substance: CIPROFLOXACIN LACTATE
     Indication: Anti-infective therapy
     Route: 048
  61. CIPROFLOXACIN LACTATE [Concomitant]
     Active Substance: CIPROFLOXACIN LACTATE
     Indication: Device related infection
     Route: 048
  62. CIPROFLOXACIN LACTATE [Concomitant]
     Active Substance: CIPROFLOXACIN LACTATE
     Indication: Peritonitis bacterial
  63. CLARITHROMYCIN [Concomitant]
     Active Substance: CLARITHROMYCIN
     Indication: Product used for unknown indication
     Route: 065
  64. DOXYCYCLINE [Concomitant]
     Active Substance: DOXYCYCLINE
     Indication: Product used for unknown indication
     Route: 065
  65. FLUCONAZOLE [Concomitant]
     Active Substance: FLUCONAZOLE
     Indication: Antifungal prophylaxis
     Route: 048
  66. IMIPENEM AND CILASTATIN SODIUM [Concomitant]
     Active Substance: CILASTATIN SODIUM\IMIPENEM
     Indication: Evidence based treatment
     Route: 042
  67. VANCOMYCIN HYDROCHLORIDE [Concomitant]
     Active Substance: VANCOMYCIN HYDROCHLORIDE
     Indication: Evidence based treatment
     Route: 033
  68. VANCOMYCIN HYDROCHLORIDE [Concomitant]
     Active Substance: VANCOMYCIN HYDROCHLORIDE
     Indication: Bacterial infection
  69. VANCOMYCIN HYDROCHLORIDE [Concomitant]
     Active Substance: VANCOMYCIN HYDROCHLORIDE
     Indication: Immunosuppressant drug therapy
  70. CIPROFLOXACIN [Concomitant]
     Active Substance: CIPROFLOXACIN
     Indication: Mycobacterium fortuitum infection
     Route: 065
  71. CIPROFLOXACIN [Concomitant]
     Active Substance: CIPROFLOXACIN
     Indication: Device related infection
  72. CIPROFLOXACIN [Concomitant]
     Active Substance: CIPROFLOXACIN
     Indication: Peritonitis bacterial
  73. CEFAZOLIN [Concomitant]
     Active Substance: CEFAZOLIN
     Indication: Evidence based treatment
     Route: 033
  74. CILASTATIN SODIUM\IMIPENEM [Concomitant]
     Active Substance: CILASTATIN SODIUM\IMIPENEM
     Indication: Product used for unknown indication
     Route: 042
  75. CLOFAZIMINE [Concomitant]
     Active Substance: CLOFAZIMINE
     Indication: Peritonitis bacterial
     Dosage: DRUG MAINTAINED
     Route: 065
  76. CLOFAZIMINE [Concomitant]
     Active Substance: CLOFAZIMINE
     Indication: Mycobacterium fortuitum infection
  77. CLOFAZIMINE [Concomitant]
     Active Substance: CLOFAZIMINE
     Indication: Device related infection

REACTIONS (9)
  - Lymphopenia [Recovered/Resolved]
  - Mycobacterial peritonitis [Recovered/Resolved]
  - Mycobacterium fortuitum infection [Recovered/Resolved]
  - Electrocardiogram QT prolonged [Recovered/Resolved]
  - Device related infection [Recovered/Resolved]
  - Decreased appetite [Recovered/Resolved]
  - Nausea [Recovered/Resolved]
  - Drug interaction [Unknown]
  - Off label use [Unknown]
